FAERS Safety Report 4642460-7 (Version None)
Quarter: 2005Q2

REPORT INFORMATION
  Report Type: 
  Country: None (occurrence: None)
  Receive Date: 20050422
  Receipt Date: 20050411
  Transmission Date: 20051028
  Serious: Yes (Hospitalization)
  Sender: FDA-Public Use
  Company Number: DE-ROCHE-401667

PATIENT
  Age: 68 Year
  Sex: Male
  Weight: 83 kg

DRUGS (9)
  1. PEG-INTERFERON ALFA 2A (RO 25-8310) [Suspect]
     Route: 058
     Dates: start: 20050218
  2. RIBAVIRIN [Suspect]
     Route: 048
     Dates: start: 20050218
  3. PLACEBO [Suspect]
     Route: 048
  4. L-THYROXINE [Concomitant]
     Dates: start: 20020215
  5. SIOFOR [Concomitant]
     Dates: start: 20021105
  6. COAPROVEL [Concomitant]
     Dates: start: 20040615
  7. ASPIRIN [Concomitant]
     Dates: start: 20041105
  8. LOCOL [Concomitant]
     Dates: start: 20041105
  9. NIF-TEN [Concomitant]
     Dosage: DRUG NAME REPORTED AS NIF-TEN 50.
     Dates: start: 20050212

REACTIONS (16)
  - ABDOMINAL PAIN UPPER [None]
  - ALANINE AMINOTRANSFERASE INCREASED [None]
  - ASPARTATE AMINOTRANSFERASE INCREASED [None]
  - DIASTOLIC DYSFUNCTION [None]
  - ENCEPHALOPATHY [None]
  - FULL BLOOD COUNT ABNORMAL [None]
  - GRANULOCYTE COUNT DECREASED [None]
  - HAEMATOCRIT DECREASED [None]
  - HAEMOGLOBIN DECREASED [None]
  - HYPOTENSION [None]
  - LYMPHOCYTE COUNT DECREASED [None]
  - PLATELET COUNT DECREASED [None]
  - PROTHROMBIN TIME SHORTENED [None]
  - RED BLOOD CELL COUNT INCREASED [None]
  - SYNCOPE VASOVAGAL [None]
  - WHITE BLOOD CELL COUNT DECREASED [None]
